FAERS Safety Report 7325752-2 (Version None)
Quarter: 2011Q1

REPORT INFORMATION
  Report Type: 
  Country: None (occurrence: None)
  Receive Date: 20110302
  Receipt Date: 20110223
  Transmission Date: 20110831
  Serious: Yes (Other)
  Sender: FDA-Public Use
  Company Number: BR-PFIZER INC-2010090450

PATIENT
  Age: 61 Year
  Sex: Male
  Weight: 105 kg

DRUGS (4)
  1. VALSARTAN [Concomitant]
     Indication: HYPERTENSION
     Dosage: UNK
  2. EXFORGE HCT [Suspect]
     Indication: HYPERTENSION
     Dosage: UNK
  3. ATENSINA [Concomitant]
     Indication: HYPERTENSION
     Dosage: 0.150 MG, 2X/DAY
  4. SUTENT [Suspect]
     Indication: RENAL CANCER
     Dosage: 50 MG, 1X/DAY, 1 CAPSULE
     Route: 048
     Dates: start: 20100717

REACTIONS (9)
  - EPISTAXIS [None]
  - BRADYCARDIA [None]
  - VOMITING [None]
  - WEIGHT DECREASED [None]
  - BLOOD PRESSURE INCREASED [None]
  - BLISTER [None]
  - DIARRHOEA [None]
  - ARRHYTHMIA [None]
  - MALAISE [None]
